FAERS Safety Report 9388340 (Version 1)
Quarter: 2013Q3

REPORT INFORMATION
  Report Type: Spontaneous
  Country: US (occurrence: None)
  Receive Date: 20130703
  Receipt Date: 20130703
  Transmission Date: 20140515
  Serious: Yes (Death, Other)
  Sender: FDA-Public Use
  Company Number: AUR-APL-2013-05429

PATIENT
  Age: 28 Year
  Sex: Male

DRUGS (6)
  1. ALPRAZOLAM [Suspect]
     Indication: PRODUCT USED FOR UNKNOWN INDICATION
  2. DIAMORPHINE (DIAMORPHINE) [Suspect]
     Indication: PRODUCT USED FOR UNKNOWN INDICATION
  3. CLONAZEPAM [Suspect]
     Indication: PRODUCT USED FOR UNKNOWN INDICATION
  4. ESCITALOPRAM (ESCITALOPRAM) [Concomitant]
  5. VALPROIC ACID (VALPROIC ACID) [Concomitant]
  6. BACLOFEN (BACLOFEN) [Concomitant]

REACTIONS (9)
  - Chorea [None]
  - Dystonia [None]
  - Central nervous system lesion [None]
  - Brain injury [None]
  - Overdose [None]
  - Loss of consciousness [None]
  - Impaired work ability [None]
  - Psychomotor hyperactivity [None]
  - Sedation [None]
